FAERS Safety Report 7824652-9 (Version None)
Quarter: 2011Q4

REPORT INFORMATION
  Report Type: 
  Country: None (occurrence: None)
  Receive Date: 20111019
  Receipt Date: 20111013
  Transmission Date: 20120403
  Serious: Yes (Death, Hospitalization, Other)
  Sender: FDA-Public Use
  Company Number: US-ALEXION PHARMACEUTICALS INC.-A201101065

PATIENT
  Sex: Male

DRUGS (9)
  1. SILVER NITRATE [Concomitant]
     Dosage: UNK
  2. ARIXTRA [Concomitant]
     Dosage: UNK
  3. CARAFATE [Concomitant]
     Dosage: UNK
  4. AMBIEN [Concomitant]
     Dosage: UNK
  5. PHENERGAN HCL [Concomitant]
     Dosage: UNK
  6. SOLIRIS [Suspect]
     Indication: PAROXYSMAL NOCTURNAL HAEMOGLOBINURIA
     Dosage: 1200 MG, UNK
     Route: 042
     Dates: start: 20090401
  7. HYDROCODONE BITARTRATE [Concomitant]
     Dosage: UNK
  8. LORTAB [Concomitant]
     Dosage: UNK
  9. LOMOTIL [Concomitant]
     Dosage: UNK

REACTIONS (11)
  - SEPSIS [None]
  - LARGE INTESTINE PERFORATION [None]
  - MUSCLE HAEMORRHAGE [None]
  - ARTHROPOD BITE [None]
  - COLITIS [None]
  - HAEMORRHAGIC STROKE [None]
  - PNEUMONIA [None]
  - SPLENIC HAEMORRHAGE [None]
  - WHITE BLOOD CELL COUNT INCREASED [None]
  - ATELECTASIS [None]
  - WOUND [None]
